FAERS Safety Report 21555820 (Version 1)
Quarter: 2022Q4

REPORT INFORMATION
  Report Type: Report from Study
  Country: US (occurrence: None)
  Receive Date: 20221104
  Receipt Date: 20221104
  Transmission Date: 20230112
  Serious: Yes (Hospitalization)
  Sender: FDA-Public Use
  Company Number: 2022A359710

PATIENT
  Sex: Female

DRUGS (1)
  1. BRILINTA [Suspect]
     Active Substance: TICAGRELOR
     Route: 048

REACTIONS (6)
  - Myocardial infarction [Unknown]
  - Somnolence [Unknown]
  - Fatigue [Unknown]
  - Alopecia [Unknown]
  - Angina pectoris [Unknown]
  - Dyspnoea [Unknown]
